FAERS Safety Report 21365408 (Version 7)
Quarter: 2024Q1

REPORT INFORMATION
  Report Type: Spontaneous
  Country: US (occurrence: US)
  Receive Date: 20220922
  Receipt Date: 20240314
  Transmission Date: 20240409
  Serious: Yes (Death, Hospitalization, Other)
  Sender: FDA-Public Use
  Company Number: US-PFIZER INC-PV202200067385

PATIENT
  Age: 80 Year
  Sex: Male
  Weight: 86.168 kg

DRUGS (1)
  1. VYNDAMAX [Suspect]
     Active Substance: TAFAMIDIS
     Indication: Amyloidosis
     Dosage: 61 MG

REACTIONS (13)
  - Dyspnoea [Fatal]
  - COVID-19 [Unknown]
  - Pulmonary congestion [Unknown]
  - Drug ineffective [Unknown]
  - Gait disturbance [Unknown]
  - Back pain [Unknown]
  - Malaise [Unknown]
  - Gait inability [Unknown]
  - Peripheral swelling [Unknown]
  - Decubitus ulcer [Unknown]
  - Asthenia [Unknown]
  - Cardiovascular disorder [Unknown]
  - Disease progression [Unknown]

NARRATIVE: CASE EVENT DATE: 20220101
